FAERS Safety Report 13862189 (Version 1)
Quarter: 2017Q3

REPORT INFORMATION
  Report Type: Report from Study
  Country: US (occurrence: AF)
  Receive Date: 20170812
  Receipt Date: 20170812
  Transmission Date: 20171127
  Serious: Yes (Death, Life-Threatening, Hospitalization)
  Sender: FDA-Public Use
  Company Number: AF-THE COMPOUNDING PHARMACY-2024561

PATIENT
  Age: 68 Year
  Sex: Male
  Weight: 81.5 kg

DRUGS (6)
  1. PRAVACHOL [Suspect]
     Active Substance: PRAVASTATIN SODIUM
  2. DIGOXIN. [Concomitant]
     Active Substance: DIGOXIN
  3. THEOPHYLLINE IN DEXTROSE [Concomitant]
     Active Substance: DEXTROSE MONOHYDRATE\THEOPHYLLINE\THEOPHYLLINE ANHYDROUS
  4. LISINOPRIL. [Suspect]
     Active Substance: LISINOPRIL
  5. SINGULAIR [Suspect]
     Active Substance: MONTELUKAST SODIUM
     Indication: KETOACIDOSIS
     Route: 013
     Dates: start: 20100510, end: 20140301
  6. IPRATROPIUM BROMIDE AND ALBUTEROL SULFATE [Interacting]
     Active Substance: ALBUTEROL SULFATE\IPRATROPIUM BROMIDE

REACTIONS (3)
  - Hepatic necrosis [None]
  - Pneumonia [None]
  - Liver function test abnormal [None]
